FAERS Safety Report 14204565 (Version 8)
Quarter: 2018Q1

REPORT INFORMATION
  Report Type: Report from Study
  Country: US (occurrence: US)
  Receive Date: 20171120
  Receipt Date: 20180327
  Transmission Date: 20180508
  Serious: Yes (Other)
  Sender: FDA-Public Use
  Company Number: US-PFIZER INC-2017448911

PATIENT
  Age: 72 Year
  Sex: Female

DRUGS (3)
  1. IBRANCE [Suspect]
     Active Substance: PALBOCICLIB
     Indication: BREAST CANCER FEMALE
     Dosage: 125 MG, DAILY
     Route: 048
     Dates: start: 20171004, end: 20171024
  2. IBRANCE [Suspect]
     Active Substance: PALBOCICLIB
     Dosage: 75 MG, DAILY
     Route: 048
     Dates: start: 20180314
  3. IBRANCE [Suspect]
     Active Substance: PALBOCICLIB
     Dosage: 100 MG, DAILY
     Route: 048
     Dates: start: 20171111, end: 20180202

REACTIONS (16)
  - Hypoaesthesia [Not Recovered/Not Resolved]
  - Leukopenia [Not Recovered/Not Resolved]
  - Nausea [Not Recovered/Not Resolved]
  - Epistaxis [Unknown]
  - Renal impairment [Unknown]
  - Anaemia [Not Recovered/Not Resolved]
  - Renal pain [Not Recovered/Not Resolved]
  - Vomiting [Unknown]
  - Constipation [Unknown]
  - Back pain [Not Recovered/Not Resolved]
  - Weight decreased [Unknown]
  - Lip dry [Unknown]
  - Bone marrow failure [Unknown]
  - Cough [Recovering/Resolving]
  - Dizziness [Unknown]
  - Eye pruritus [Unknown]

NARRATIVE: CASE EVENT DATE: 2017
